FAERS Safety Report 4864336-2 (Version None)
Quarter: 2005Q4

REPORT INFORMATION
  Report Type: 
  Country: None (occurrence: None)
  Receive Date: 20051222
  Receipt Date: 20050926
  Transmission Date: 20060501
  Serious: Yes (Hospitalization)
  Sender: FDA-Public Use
  Company Number: US-MERCK-0509USA04159

PATIENT
  Age: 35 Year
  Sex: Male
  Weight: 145 kg

DRUGS (2)
  1. VIOXX [Suspect]
     Indication: OSTEOARTHRITIS
     Route: 048
     Dates: start: 20030429, end: 20040603
  2. VIOXX [Suspect]
     Indication: PAIN
     Route: 048
     Dates: start: 20030429, end: 20040603

REACTIONS (1)
  - DEEP VEIN THROMBOSIS [None]
